FAERS Safety Report 9610413 (Version 3)
Quarter: 2013Q4

REPORT INFORMATION
  Report Type: Spontaneous
  Country: US (occurrence: US)
  Receive Date: 20131009
  Receipt Date: 20131119
  Transmission Date: 20140711
  Serious: Yes (Other)
  Sender: FDA-Public Use
  Company Number: US-PFIZER INC-2013286583

PATIENT
  Age: 66 Year
  Sex: Female
  Weight: 70 kg

DRUGS (4)
  1. ESTRING [Suspect]
     Indication: VULVOVAGINAL DRYNESS
     Dosage: UNK, EVERY 3 MONTHS
     Route: 067
     Dates: start: 200011, end: 201310
  2. ESTRING [Suspect]
     Indication: ATROPHIC VULVOVAGINITIS
     Dosage: 2 MG, EVERY 3 MONTHS
     Route: 067
     Dates: start: 2005
  3. CIPRO ^BAYER^ [Concomitant]
     Indication: URINARY TRACT INFECTION
     Dosage: 250 MG, 2X/DAY
     Dates: start: 20130712, end: 20130718
  4. DIFLUCAN [Concomitant]
     Indication: CANDIDA INFECTION
     Dosage: 150 MG, UNK
     Dates: start: 20130713, end: 20130713

REACTIONS (4)
  - Urinary tract infection [Unknown]
  - Candida infection [Unknown]
  - Vulvovaginal discomfort [Unknown]
  - Vaginismus [Recovered/Resolved]
